FAERS Safety Report 13256262 (Version 1)
Quarter: 2017Q1

REPORT INFORMATION
  Report Type: Spontaneous
  Country: US (occurrence: US)
  Receive Date: 20170221
  Receipt Date: 20170221
  Transmission Date: 20170428
  Serious: No
  Sender: FDA-Public Use
  Company Number: US-BAYER-2017-034173

PATIENT
  Age: 84 Year
  Sex: Male
  Weight: 68 kg

DRUGS (11)
  1. CARVEDILOL. [Concomitant]
     Active Substance: CARVEDILOL
  2. MIRALAX [Suspect]
     Active Substance: POLYETHYLENE GLYCOL 3350
     Indication: CONSTIPATION PROPHYLAXIS
     Dosage: UNK
     Route: 048
     Dates: start: 201702, end: 20170220
  3. ONE-A-DAY MEN^S /01624201/ [Concomitant]
  4. FISH OIL [Concomitant]
     Active Substance: FISH OIL
  5. OMEPRAZOLE. [Concomitant]
     Active Substance: OMEPRAZOLE
  6. GEMFIBROZIL. [Concomitant]
     Active Substance: GEMFIBROZIL
  7. FLAXSEED [Concomitant]
     Active Substance: FLAX SEED
  8. NITROGLYCERIN. [Concomitant]
     Active Substance: NITROGLYCERIN
  9. DIGOXIN. [Concomitant]
     Active Substance: DIGOXIN
  10. VITAMIN E [Concomitant]
     Active Substance: .ALPHA.-TOCOPHEROL
  11. VITAMIN D3 [Concomitant]
     Active Substance: CHOLECALCIFEROL

REACTIONS (1)
  - Product use issue [Unknown]

NARRATIVE: CASE EVENT DATE: 201702
